FAERS Safety Report 15437738 (Version 4)
Quarter: 2019Q1

REPORT INFORMATION
  Report Type: Spontaneous
  Country: BR (occurrence: BR)
  Receive Date: 20180927
  Receipt Date: 20190220
  Transmission Date: 20190417
  Serious: Yes (Other)
  Sender: FDA-Public Use
  Company Number: BR-BIOMARINAP-BR-2018-117729

PATIENT
  Sex: Female
  Weight: 16 kg

DRUGS (11)
  1. LUFTAL                             /00159501/ [Concomitant]
     Indication: PRODUCT USED FOR UNKNOWN INDICATION
     Dosage: UNK
  2. VIMIZIM [Suspect]
     Active Substance: ELOSULFASE ALFA
     Indication: MUCOPOLYSACCHARIDOSIS IV
     Dosage: UNK UNK, QW
     Route: 042
     Dates: start: 20150209
  3. NORMAL SALINE [Concomitant]
     Active Substance: SODIUM CHLORIDE
     Indication: PNEUMONIA
     Dosage: UNK, TID
     Route: 055
  4. ATROVENT [Concomitant]
     Active Substance: IPRATROPIUM BROMIDE
     Indication: PNEUMONIA
     Dosage: UNK UNK, TID
  5. ZINNAT                             /00454602/ [Concomitant]
     Active Substance: CEFUROXIME SODIUM
     Indication: PNEUMONIA
     Dosage: 500 MG, QD
  6. MONTELUKAST [Concomitant]
     Active Substance: MONTELUKAST SODIUM
     Indication: PRODUCT USED FOR UNKNOWN INDICATION
  7. SALBUTAMOL [Concomitant]
     Active Substance: ALBUTEROL
     Indication: PRODUCT USED FOR UNKNOWN INDICATION
  8. SPIRIVA [Concomitant]
     Active Substance: TIOTROPIUM BROMIDE MONOHYDRATE
     Indication: PRODUCT USED FOR UNKNOWN INDICATION
     Dosage: UNK UNK, QD
  9. AZITHROMYCIN ANHYDROUS. [Concomitant]
     Active Substance: AZITHROMYCIN ANHYDROUS
     Indication: PRODUCT USED FOR UNKNOWN INDICATION
     Dosage: 500 ML, UNK
  10. BEROTEC [Concomitant]
     Active Substance: FENOTEROL HYDROBROMIDE
     Indication: PNEUMONIA
     Dosage: UNK, TID
     Route: 055
  11. LACTOBACILLUS [Concomitant]
     Active Substance: LACTOBACILLUS ACIDOPHILUS
     Indication: PRODUCT USED FOR UNKNOWN INDICATION

REACTIONS (9)
  - Panic disorder [Recovering/Resolving]
  - Psychotic disorder [Recovering/Resolving]
  - Anal incontinence [Recovering/Resolving]
  - Urinary incontinence [Recovering/Resolving]
  - Anxiety [Not Recovered/Not Resolved]
  - Soliloquy [Recovering/Resolving]
  - Depression [Recovering/Resolving]
  - Agitation [Recovering/Resolving]
  - Poor quality sleep [Recovering/Resolving]

NARRATIVE: CASE EVENT DATE: 2018
